FAERS Safety Report 17052450 (Version 2)
Quarter: 2019Q4

REPORT INFORMATION
  Report Type: Report from Study
  Country: GB (occurrence: GB)
  Receive Date: 20191120
  Receipt Date: 20191211
  Transmission Date: 20200122
  Serious: Yes (Other)
  Sender: FDA-Public Use
  Company Number: GB-TEVA-2019-GB-1137446

PATIENT
  Sex: Female

DRUGS (3)
  1. COLOBREATHE [Suspect]
     Active Substance: COLISTIMETHATE SODIUM
     Indication: CYSTIC FIBROSIS
     Dosage: 0.6625MIU, ALTERNATE MONTHS
     Route: 065
     Dates: start: 201401
  2. PULMOZYME [Suspect]
     Active Substance: DORNASE ALFA
     Route: 065
  3. TOBRAMYCIN. [Suspect]
     Active Substance: TOBRAMYCIN
     Route: 065

REACTIONS (3)
  - Chest discomfort [Unknown]
  - Respiratory tract irritation [Unknown]
  - Pulmonary haemorrhage [Unknown]
